FAERS Safety Report 8970944 (Version 1)
Quarter: 2012Q4

REPORT INFORMATION
  Report Type: 
  Country: SE (occurrence: SE)
  Receive Date: 20121218
  Receipt Date: 20121218
  Transmission Date: 20130627
  Serious: Yes (Hospitalization, Other)
  Sender: FDA-Public Use
  Company Number: SE-PFIZER INC-2012317517

PATIENT
  Age: 68 Year
  Sex: Male
  Weight: 94.8 kg

DRUGS (3)
  1. GENOTROPIN [Suspect]
     Dosage: 0.4 mg, 1x/day,7 injections/week
     Route: 058
     Dates: start: 20110209
  2. TESTOSTERONE [Concomitant]
     Indication: HYPOGONADISM
     Dosage: UNK
     Dates: start: 20090101
  3. LEVOTHYROXINE [Concomitant]
     Indication: THYROID DISORDER
     Dosage: UNK
     Dates: start: 2010

REACTIONS (1)
  - Pituitary tumour [Unknown]
